FAERS Safety Report 7903200-9 (Version None)
Quarter: 2011Q4

REPORT INFORMATION
  Report Type: 
  Country: None (occurrence: None)
  Receive Date: 20111108
  Receipt Date: 20111108
  Transmission Date: 20120403
  Serious: Yes (Other)
  Sender: FDA-Public Use
  Company Number: None

PATIENT
  Sex: Female
  Weight: 42.1845 kg

DRUGS (1)
  1. BUTALBITAL ACETAMINOPHEN AND CAFFEINE [Suspect]
     Indication: MIGRAINE
     Dosage: 325/50/40 Q Q 6?PRN ORAL
     Route: 048

REACTIONS (2)
  - HEADACHE [None]
  - PRODUCT SUBSTITUTION ISSUE [None]
